FAERS Safety Report 23470168 (Version 1)
Quarter: 2024Q1

REPORT INFORMATION
  Report Type: Spontaneous
  Country: CA (occurrence: CA)
  Receive Date: 20240202
  Receipt Date: 20240202
  Transmission Date: 20240410
  Serious: Yes (Hospitalization)
  Sender: FDA-Public Use
  Company Number: CA-SANDOZ-SDZ2023CA008257

PATIENT
  Sex: Male

DRUGS (10)
  1. ASPIRIN [Suspect]
     Active Substance: ASPIRIN
     Indication: Arteriosclerosis
     Dosage: 81 MG, QD
     Route: 065
  2. BILASTINE [Suspect]
     Active Substance: BILASTINE
     Indication: Antiallergic therapy
     Route: 065
  3. CIPRALEX [Suspect]
     Active Substance: ESCITALOPRAM OXALATE
     Indication: Product used for unknown indication
     Dosage: 10 MG, QD
     Route: 065
  4. CRESTOR [Suspect]
     Active Substance: ROSUVASTATIN CALCIUM
     Indication: Arteriosclerosis
     Dosage: 40 MG, QD
     Route: 065
  5. METOPROLOL [Suspect]
     Active Substance: METOPROLOL
     Indication: Arteriosclerosis
     Dosage: 25 MG, BID
     Route: 048
  6. NITROGLYCERIN [Suspect]
     Active Substance: NITROGLYCERIN
     Indication: Product used for unknown indication
     Route: 065
  7. NITROGLYCERIN [Suspect]
     Active Substance: NITROGLYCERIN
     Indication: Arteriosclerosis
     Route: 065
  8. RAMIPRIL [Suspect]
     Active Substance: RAMIPRIL
     Indication: Arteriosclerosis
     Dosage: 5 MG, QD
     Route: 065
     Dates: start: 20230621
  9. TICAGRELOR [Suspect]
     Active Substance: TICAGRELOR
     Indication: Arteriosclerosis
     Dosage: UNK
     Route: 065
     Dates: end: 20230621
  10. ALBUTEROL [Suspect]
     Active Substance: ALBUTEROL
     Indication: Arteriosclerosis
     Route: 065

REACTIONS (3)
  - Chest discomfort [Unknown]
  - Hypertension [Unknown]
  - Off label use [Unknown]
